FAERS Safety Report 20932068 (Version 3)
Quarter: 2022Q3

REPORT INFORMATION
  Report Type: Spontaneous
  Country: JP (occurrence: JP)
  Receive Date: 20220608
  Receipt Date: 20220721
  Transmission Date: 20221026
  Serious: Yes (Life-Threatening)
  Sender: FDA-Public Use
  Company Number: JP-ELI_LILLY_AND_COMPANY-JP202206003047

PATIENT
  Age: 75 Year
  Sex: Female

DRUGS (1)
  1. OLUMIANT [Suspect]
     Active Substance: BARICITINIB
     Indication: Rheumatoid arthritis
     Dosage: 4 MG, DAILY
     Route: 048
     Dates: start: 20210317, end: 20220420

REACTIONS (2)
  - Pancreatic carcinoma metastatic [Not Recovered/Not Resolved]
  - Metastases to liver [Not Recovered/Not Resolved]
